FAERS Safety Report 23390434 (Version 2)
Quarter: 2024Q1

REPORT INFORMATION
  Report Type: Other
  Country: US (occurrence: None)
  Receive Date: 20240111
  Receipt Date: 20240115
  Transmission Date: 20240410
  Serious: No
  Sender: FDA-Public Use
  Company Number: US-ROCHE-3489524

PATIENT
  Age: 60 Year
  Sex: Female

DRUGS (1)
  1. OCREVUS [Suspect]
     Active Substance: OCRELIZUMAB
     Indication: Primary progressive multiple sclerosis
     Dosage: DATE OF SERVICE: 18/MAY/2023, 300 MG ON DAY 1 THEN 2 WEEKS LATER 300 MG THEN 600MG FOR EVERY 6 MONTH
     Route: 042

REACTIONS (1)
  - JC polyomavirus test positive [Unknown]
